FAERS Safety Report 10201729 (Version 1)
Quarter: 2014Q2

REPORT INFORMATION
  Report Type: Spontaneous
  Country: US (occurrence: US)
  Receive Date: 20140528
  Receipt Date: 20140528
  Transmission Date: 20141212
  Serious: No
  Sender: FDA-Public Use
  Company Number: US-BRISTOL-MYERS SQUIBB COMPANY-19014828

PATIENT
  Sex: Male

DRUGS (3)
  1. METFORMIN HCL [Suspect]
  2. VICTOZA [Suspect]
     Dosage: STARTED AT AN UNKNOWN DOSE AND STOPPED ON 06-MAY-2013.?RESTARTED ON 14-MAY-2013 AT A DOSE OF 0.6 MG
  3. GLIPIZIDE [Suspect]

REACTIONS (2)
  - Diarrhoea [Unknown]
  - Nausea [Unknown]
